FAERS Safety Report 12059769 (Version 4)
Quarter: 2016Q4

REPORT INFORMATION
  Report Type: Report from Study
  Country: KR (occurrence: KR)
  Receive Date: 20160210
  Receipt Date: 20161017
  Transmission Date: 20170206
  Serious: Yes (Other)
  Sender: FDA-Public Use
  Company Number: PHHY2016KR017124

PATIENT
  Age: 44 Year
  Sex: Female

DRUGS (14)
  1. HYDRINE//HYDROXYCARBAMIDE [Concomitant]
     Indication: PLATELET COUNT INCREASED
     Dosage: 1500 MG, UNK
     Route: 048
     Dates: start: 20150712, end: 20150719
  2. LIVERACT [Concomitant]
     Indication: HEPATIC ENZYME INCREASED
     Dosage: 10 MG, UNK
     Route: 042
     Dates: start: 20150725, end: 20150727
  3. ITOPRIDE HCL [Concomitant]
     Indication: DYSPEPSIA
     Dosage: 150 MG, UNK
     Route: 048
     Dates: start: 20150721, end: 20150803
  4. LASIX [Concomitant]
     Active Substance: FUROSEMIDE
     Indication: FLUID IMBALANCE
     Dosage: 20 MG, UNK
     Route: 042
     Dates: start: 20150713, end: 20150728
  5. PENIRAMIN [Concomitant]
     Indication: PROPHYLAXIS
     Dosage: 4 MG, UNK
     Route: 042
     Dates: start: 20150711, end: 20150719
  6. TASIGNA [Suspect]
     Active Substance: NILOTINIB
     Indication: CHRONIC MYELOID LEUKAEMIA
     Dosage: 600 MG, QD
     Route: 048
     Dates: start: 20150717, end: 20150818
  7. TASIGNA [Suspect]
     Active Substance: NILOTINIB
     Dosage: 400 MG, QD
     Route: 048
     Dates: start: 20150825
  8. ALPRAZOLAM. [Concomitant]
     Active Substance: ALPRAZOLAM
     Indication: INSOMNIA
     Dosage: 0.125 MG, UNK
     Route: 048
     Dates: start: 20150724, end: 20150724
  9. AGRYLIN [Concomitant]
     Active Substance: ANAGRELIDE HYDROCHLORIDE
     Indication: THROMBOCYTOSIS
     Dosage: 4 MG, UNK
     Route: 048
     Dates: start: 20150714, end: 20150723
  10. INFLUENZA VIRUS VACCINE [Concomitant]
     Active Substance: INFLUENZA VIRUS VACCINE
     Indication: ANTIVIRAL PROPHYLAXIS
     Dosage: 0.5 OT, UNK
     Route: 030
     Dates: start: 20151013, end: 20151013
  11. ASPIRIN. [Concomitant]
     Active Substance: ASPIRIN
     Indication: ANTIPLATELET THERAPY
     Dosage: 100 MG, UNK
     Route: 048
     Dates: start: 20150722, end: 20150803
  12. RENAGEL [Concomitant]
     Active Substance: SEVELAMER HYDROCHLORIDE
     Indication: HYPERCALCAEMIA
     Dosage: 1600 MG, UNK
     Route: 048
     Dates: start: 20150712, end: 20150803
  13. PETHIDINE [Concomitant]
     Active Substance: MEPERIDINE
     Indication: PROPHYLAXIS
     Dosage: 25 MG, UNK
     Route: 042
     Dates: start: 20150713, end: 20160105
  14. GASMOTIN [Concomitant]
     Active Substance: MOSAPRIDE CITRATE
     Indication: DYSPEPSIA
     Dosage: 5 MG, UNK
     Route: 048
     Dates: start: 20150720, end: 20150720

REACTIONS (3)
  - Alopecia [Not Recovered/Not Resolved]
  - Amylase increased [Recovered/Resolved]
  - Lipase increased [Recovered/Resolved]

NARRATIVE: CASE EVENT DATE: 20150818
